FAERS Safety Report 9370294 (Version 2)
Quarter: 2013Q2

REPORT INFORMATION
  Report Type: Other
  Country: IT (occurrence: IT)
  Receive Date: 20130626
  Receipt Date: 20130626
  Transmission Date: 20140414
  Serious: Yes (Other)
  Sender: FDA-Public Use
  Company Number: IT-ACTAVIS-2013-07602

PATIENT
  Age: 15 Year
  Sex: Male

DRUGS (5)
  1. PARACETAMOL (UNKNOWN) [Suspect]
     Indication: PYREXIA
     Dosage: 1 G TOTAL
     Route: 048
     Dates: start: 20130314, end: 20130314
  2. PSEUDOEPHEDRINE HYDROCHLORIDE [Suspect]
     Indication: PYREXIA
     Dosage: 30 MG TOTAL
     Route: 048
     Dates: start: 20130314, end: 20130314
  3. DEXTROMETHORPHAN [Suspect]
     Indication: PYREXIA
     Dosage: 10 MG TOTAL
     Route: 048
     Dates: start: 20130314, end: 20130314
  4. CHLORPHENAMINE MALEATE [Suspect]
     Indication: PYREXIA
     Dosage: 2 MG TOTAL
     Route: 048
     Dates: start: 20130314, end: 20130314
  5. METAMIZOLE SODIUM [Suspect]
     Indication: PYREXIA
     Dosage: 0.5 G TOTAL
     Route: 048
     Dates: start: 20130314, end: 20130314

REACTIONS (5)
  - Loss of consciousness [Recovering/Resolving]
  - Erythema [Recovering/Resolving]
  - Eyelid oedema [Recovering/Resolving]
  - Hypotonia [Recovering/Resolving]
  - Pruritus [Recovering/Resolving]
